FAERS Safety Report 9363040 (Version 1)
Quarter: 2013Q2

REPORT INFORMATION
  Report Type: Spontaneous
  Country: US (occurrence: US)
  Receive Date: 20130624
  Receipt Date: 20130624
  Transmission Date: 20140414
  Serious: No
  Sender: FDA-Public Use
  Company Number: US-PFIZER INC-2013187590

PATIENT
  Age: 52 Year
  Sex: Female
  Weight: 90.7 kg

DRUGS (7)
  1. EFFEXOR XR [Suspect]
     Indication: DEPRESSION
     Dosage: 225 MG, 1X/DAY
     Route: 048
     Dates: end: 201306
  2. LASIX [Concomitant]
     Dosage: 80 MG, UNK
  3. ABILIFY [Concomitant]
     Dosage: 5 MG, UNK
  4. ASPIRIN [Concomitant]
     Dosage: 81 MG, UNK
  5. VITAMIN D [Concomitant]
     Dosage: 1000 IU, UNK
  6. POTASSIUM [Concomitant]
     Dosage: 20 MG (TWO 10 MG), 3X/DAY
  7. NEXIUM [Concomitant]
     Dosage: 40 MG, 1X/DAY

REACTIONS (6)
  - Dizziness [Unknown]
  - Nervousness [Unknown]
  - Dry mouth [Unknown]
  - Crying [Unknown]
  - Tremor [Unknown]
  - Neuropathy peripheral [Unknown]
